FAERS Safety Report 7972113-9 (Version None)
Quarter: 2011Q4

REPORT INFORMATION
  Report Type: 
  Country: None (occurrence: None)
  Receive Date: 20111212
  Receipt Date: 20111202
  Transmission Date: 20120403
  Serious: Yes (Other)
  Sender: FDA-Public Use
  Company Number: GB-GILEAD-2011-0047672

PATIENT
  Age: 30 Year
  Sex: Female

DRUGS (11)
  1. CYTARABINE [Suspect]
     Indication: ACUTE MYELOID LEUKAEMIA
     Dosage: UNK
     Route: 030
     Dates: start: 20110812
  2. ITRACONAZOLE [Suspect]
     Dosage: 200 MG, UNK
     Dates: start: 20110812, end: 20110920
  3. LANSOPRAZOLE [Concomitant]
     Dosage: 30 MG, UNK
     Dates: start: 20110819, end: 20111002
  4. DAUNORUBICIN CITRATE LIPOSOME [Suspect]
     Indication: MYELODYSPLASTIC SYNDROME
     Dosage: UNK
     Dates: start: 20110812
  5. ACYCLOVIR [Concomitant]
     Dosage: 400 MG, UNK
     Dates: start: 20110812, end: 20111018
  6. CYTARABINE [Suspect]
     Indication: MYELODYSPLASTIC SYNDROME
  7. ALLOPURINOL [Concomitant]
     Dosage: 300 MG, QD
     Dates: start: 20110811, end: 20110830
  8. DAUNORUBICIN CITRATE LIPOSOME [Suspect]
     Indication: ACUTE MYELOID LEUKAEMIA
  9. NORETHINDRONE [Suspect]
     Dosage: 5 MG, UNK
     Dates: start: 20110811, end: 20111002
  10. GEMTUZUMAB OZOGAMICIN [Suspect]
     Indication: MYELODYSPLASTIC SYNDROME
  11. GEMTUZUMAB OZOGAMICIN [Suspect]
     Indication: ACUTE MYELOID LEUKAEMIA
     Dosage: 6 MG, UNK
     Dates: start: 20110812

REACTIONS (2)
  - HEPATOTOXICITY [None]
  - ALANINE AMINOTRANSFERASE INCREASED [None]
